FAERS Safety Report 7903617-2 (Version None)
Quarter: 2011Q4

REPORT INFORMATION
  Report Type: 
  Country: None (occurrence: None)
  Receive Date: 20111107
  Receipt Date: 20111018
  Transmission Date: 20120403
  Serious: Yes (Other)
  Sender: FDA-Public Use
  Company Number: 1084995

PATIENT
  Age: 56 Year
  Sex: Female

DRUGS (11)
  1. OXALIPLATIN [Suspect]
     Indication: CHEMOTHERAPY
     Dosage: INTRAVENOUS DRIP
     Route: 042
     Dates: start: 20110912, end: 20111012
  2. OXALIPLATIN [Suspect]
     Indication: CHEMOTHERAPY
     Dosage: INTRAVENOUS DRIP
     Route: 042
     Dates: start: 20110921
  3. (CAPECITABINE) [Concomitant]
  4. DEXAMETHASONE [Concomitant]
  5. (LOPERAMIDE) [Concomitant]
  6. GRANISETRON [Concomitant]
  7. OXALIPLATIN [Suspect]
     Indication: CHEMOTHERAPY
     Dosage: INTRAVENOUS DRIP
     Route: 041
     Dates: start: 20110921
  8. ROSUVASTATIN [Concomitant]
  9. ACETAMINOPHEN [Concomitant]
  10. OXALIPLATIN [Suspect]
     Indication: CHEMOTHERAPY
     Dosage: INTRAVENOUS DRIP
     Route: 041
     Dates: start: 20111012
  11. (METOCLOPRAM) [Concomitant]

REACTIONS (6)
  - HYPERSENSITIVITY [None]
  - HEADACHE [None]
  - PARAESTHESIA [None]
  - THROAT TIGHTNESS [None]
  - EYELID DISORDER [None]
  - DYSPNOEA [None]
